FAERS Safety Report 23060134 (Version 1)
Quarter: 2023Q4

REPORT INFORMATION
  Report Type: Spontaneous
  Country: CN (occurrence: CN)
  Receive Date: 20231012
  Receipt Date: 20231012
  Transmission Date: 20240110
  Serious: Yes (Hospitalization, Other)
  Sender: FDA-Public Use
  Company Number: None

PATIENT
  Age: 74 Year
  Sex: Male
  Weight: 56.5 kg

DRUGS (7)
  1. CYCLOPHOSPHAMIDE [Suspect]
     Active Substance: CYCLOPHOSPHAMIDE
     Indication: Non-Hodgkin^s lymphoma
     Dosage: 1 G, ONE TIME IN ONE DAY, DILUTED WITH 500 ML OF SODIUM CHLORIDE
     Route: 041
     Dates: start: 20230923, end: 20230923
  2. CYCLOPHOSPHAMIDE [Suspect]
     Active Substance: CYCLOPHOSPHAMIDE
     Indication: Chemotherapy
  3. SODIUM CHLORIDE [Suspect]
     Active Substance: SODIUM CHLORIDE
     Indication: Vehicle solution use
     Dosage: 500 ML, ONE TIME IN ONE DAY, USED TO DILUTE 1 G OF CYCLOPHOSPHAMIDE
     Route: 041
     Dates: start: 20230923, end: 20230923
  4. SODIUM CHLORIDE [Suspect]
     Active Substance: SODIUM CHLORIDE
     Dosage: 250 ML, ONE TIME IN ONE DAY, USED TO DILUTE 65 MG OF PIRARUBICIN HYDROCHLORIDE
     Route: 041
     Dates: start: 20230923, end: 20230923
  5. PIRARUBICIN HYDROCHLORIDE [Suspect]
     Active Substance: PIRARUBICIN HYDROCHLORIDE
     Indication: Non-Hodgkin^s lymphoma
     Dosage: 65 MG, ONE TIME IN ONE DAY, DILUTED WITH 250 ML OF SODIUM CHLORIDE
     Route: 041
     Dates: start: 20230923, end: 20230923
  6. PIRARUBICIN HYDROCHLORIDE [Suspect]
     Active Substance: PIRARUBICIN HYDROCHLORIDE
     Indication: Chemotherapy
  7. PREDNISONE [Suspect]
     Active Substance: PREDNISONE
     Indication: Non-Hodgkin^s lymphoma
     Dosage: 100 MG, ONCE DAILY
     Route: 065
     Dates: start: 20230923, end: 20230923

REACTIONS (3)
  - Condition aggravated [Unknown]
  - Non-Hodgkin^s lymphoma [Unknown]
  - Myelosuppression [Recovering/Resolving]

NARRATIVE: CASE EVENT DATE: 20230924
